FAERS Safety Report 11196775 (Version 3)
Quarter: 2015Q4

REPORT INFORMATION
  Report Type: Report from Study
  Country: JP (occurrence: JP)
  Receive Date: 20150617
  Receipt Date: 20151119
  Transmission Date: 20160304
  Serious: Yes (Hospitalization)
  Sender: FDA-Public Use
  Company Number: JP-EISAI MEDICAL RESEARCH-EC-2015-007675

PATIENT
  Age: 83 Year
  Sex: Male

DRUGS (14)
  1. ARICEPT [Suspect]
     Active Substance: DONEPEZIL HYDROCHLORIDE
     Indication: DEMENTIA ALZHEIMER^S TYPE
     Route: 048
     Dates: start: 20140226
  2. MEMARY [Suspect]
     Active Substance: MEMANTINE HYDROCHLORIDE
     Route: 048
     Dates: start: 20140319
  3. GASTER [Concomitant]
     Active Substance: FAMOTIDINE
  4. JANUVIA [Concomitant]
     Active Substance: SITAGLIPTIN PHOSPHATE
  5. MAGMITT [Concomitant]
     Active Substance: MAGNESIUM OXIDE
  6. FERROMIA [Concomitant]
     Active Substance: FERROUS CITRATE
  7. TEGRETOL [Concomitant]
     Active Substance: CARBAMAZEPINE
  8. MEMARY [Suspect]
     Active Substance: MEMANTINE HYDROCHLORIDE
     Route: 048
     Dates: start: 20140312, end: 20140318
  9. SILECE [Concomitant]
     Active Substance: FLUNITRAZEPAM
  10. MEMARY [Suspect]
     Active Substance: MEMANTINE HYDROCHLORIDE
     Route: 048
     Dates: start: 20140305, end: 20140311
  11. TRIAZOLAM. [Concomitant]
     Active Substance: TRIAZOLAM
  12. TSUMURA YOKUKANSAN EXTRACT GRANULES FOR ETHICAL USE [Concomitant]
     Active Substance: HERBALS
  13. MEMARY [Suspect]
     Active Substance: MEMANTINE HYDROCHLORIDE
     Indication: DEMENTIA ALZHEIMER^S TYPE
     Route: 048
     Dates: start: 20140226, end: 20140304
  14. PLAVIX [Concomitant]
     Active Substance: CLOPIDOGREL BISULFATE

REACTIONS (3)
  - Cerebral infarction [Recovering/Resolving]
  - Seizure [Recovering/Resolving]
  - Loss of consciousness [Recovering/Resolving]

NARRATIVE: CASE EVENT DATE: 20140701
